FAERS Safety Report 12009534 (Version 1)
Quarter: 2016Q1

REPORT INFORMATION
  Report Type: Spontaneous
  Country: US (occurrence: None)
  Receive Date: 20160204
  Receipt Date: 20160204
  Transmission Date: 20160526
  Serious: No
  Sender: FDA-Public Use
  Company Number: None

PATIENT
  Age: 81 Year
  Sex: Female
  Weight: 55.34 kg

DRUGS (8)
  1. ANASTROZOLE. [Suspect]
     Active Substance: ANASTROZOLE
     Indication: HORMONE SUPPRESSION THERAPY
     Dates: start: 20151030, end: 20151115
  2. VIT. D [Concomitant]
  3. FISH [Concomitant]
     Active Substance: FISH
  4. MULTIVITAMINS [Concomitant]
     Active Substance: VITAMINS
  5. VAGINAL PREMARIN [Concomitant]
  6. VITAMIN C [Concomitant]
     Active Substance: ASCORBIC ACID
  7. MAGNESIUM [Concomitant]
     Active Substance: MAGNESIUM
  8. OCUVITE [Concomitant]
     Active Substance: VITAMINS

REACTIONS (3)
  - Hot flush [None]
  - Pain in extremity [None]
  - Burning sensation [None]

NARRATIVE: CASE EVENT DATE: 20151114
